FAERS Safety Report 6027651-5 (Version None)
Quarter: 2009Q1

REPORT INFORMATION
  Report Type: 
  Country: None (occurrence: None)
  Receive Date: 20090105
  Receipt Date: 20070302
  Transmission Date: 20090719
  Serious: Yes (Hospitalization, Other)
  Sender: FDA-Public Use
  Company Number: DE-NOVOPROD-259245

PATIENT
  Sex: Female

DRUGS (2)
  1. NORDITROPIN [Suspect]
     Indication: TURNER'S SYNDROME
     Dosage: 1.8 MG, QD
     Route: 058
     Dates: start: 19970527, end: 20060701
  2. PRESOMEN                           /00073001/ [Concomitant]
     Dosage: .3 MG FOR THREE WEEKS FOLLOWED BY ONE WEEK PAUSE
     Route: 048

REACTIONS (1)
  - OSTEOMYELITIS [None]
